FAERS Safety Report 15849144 (Version 2)
Quarter: 2019Q1

REPORT INFORMATION
  Report Type: Spontaneous
  Country: US (occurrence: US)
  Receive Date: 20190121
  Receipt Date: 20190129
  Transmission Date: 20190417
  Serious: Yes (Life-Threatening, Hospitalization)
  Sender: FDA-Public Use
  Company Number: US-PFIZER INC-2019027310

PATIENT
  Age: 38 Year
  Sex: Female

DRUGS (7)
  1. INSULIN [Suspect]
     Active Substance: INSULIN NOS
     Dosage: HIGH DOSE BOLUS WITH DRIP
  2. CYPROHEPTADINE. [Suspect]
     Active Substance: CYPROHEPTADINE
  3. PROMETHAZINE HCL [Suspect]
     Active Substance: PROMETHAZINE HYDROCHLORIDE
     Dosage: UNK
     Route: 048
  4. CLONAZEPAM. [Suspect]
     Active Substance: CLONAZEPAM
     Dosage: PILLS
     Route: 048
  5. AMITRIPTYLINE [Suspect]
     Active Substance: AMITRIPTYLINE
     Dosage: UNK
     Route: 048
  6. AMLODIPINE BESILATE [Suspect]
     Active Substance: AMLODIPINE BESYLATE
     Dosage: UNK
     Route: 048
  7. MONTELUKAST [Suspect]
     Active Substance: MONTELUKAST SODIUM
     Dosage: UNK
     Route: 048

REACTIONS (9)
  - Neurogenic shock [Recovering/Resolving]
  - Cardiac arrest [Recovering/Resolving]
  - Intestinal ischaemia [Recovered/Resolved]
  - Pulseless electrical activity [Recovering/Resolving]
  - Respiratory failure [Recovered/Resolved]
  - Mental status changes [Recovering/Resolving]
  - Overdose [Recovering/Resolving]
  - Hypoperfusion [Recovered/Resolved with Sequelae]
  - Cardiogenic shock [Recovering/Resolving]
